FAERS Safety Report 7592413-4 (Version None)
Quarter: 2011Q3

REPORT INFORMATION
  Report Type: 
  Country: None (occurrence: None)
  Receive Date: 20110705
  Receipt Date: 20110705
  Transmission Date: 20111222
  Serious: Yes (Other)
  Sender: FDA-Public Use
  Company Number: None

PATIENT
  Sex: Female
  Weight: 81.6475 kg

DRUGS (2)
  1. ZOSYN [Suspect]
     Indication: BRONCHITIS
     Dosage: 4.5 GM Q8H IV
     Route: 042
     Dates: start: 20110623, end: 20110627
  2. GAMMAGARD LIQUID [Concomitant]

REACTIONS (5)
  - RASH PRURITIC [None]
  - PAIN [None]
  - INFUSION RELATED REACTION [None]
  - RASH ERYTHEMATOUS [None]
  - RASH GENERALISED [None]
